FAERS Safety Report 10361947 (Version 1)
Quarter: 2014Q1

REPORT INFORMATION
  Report Type: Spontaneous
  Country: US (occurrence: None)
  Receive Date: 20140306
  Receipt Date: 20140306
  Transmission Date: 20141002
  Serious: Yes (Other)
  Sender: FDA-Public Use
  Company Number: 163-21880-13073718

PATIENT
  Age: 63 Year
  Sex: Male

DRUGS (12)
  1. REVLIMID [Suspect]
     Indication: PLASMA CELL MYELOMA
     Route: 048
     Dates: start: 20110311
  2. PANTOPRAZOLE SODIUM (PANTOPRAZOLE SODIUM) [Concomitant]
  3. NASONEX (MOMEETASONE FUROATE) (NASAL DROPS (INCLUDING NASAL SPRAY) [Concomitant]
  4. SUMATRIPTAN SUCCINATE (SUMATRIPTAN SUCCINATE) [Concomitant]
  5. CITALOPRAM HYDROBROMIDE (CITALOPRAM HYDROBROMIDE) [Concomitant]
  6. FENTANYL (FENTANYL) (POULTICE OR PATCH) [Concomitant]
  7. AZITHROMYCIN (AZITHROMYCIN) [Concomitant]
  8. METHOCARBAMOL (METHOCARBAMOL) [Concomitant]
  9. HYDROCODONE/ACETAMINOPHEN (REMEDEINE) [Concomitant]
  10. BENZONATATE (BENZONATATE) [Concomitant]
  11. CHLORPHENIRAMINE (CHLORPHENAMINE) [Concomitant]
  12. ASPIRIN [Concomitant]

REACTIONS (4)
  - Full blood count decreased [None]
  - White blood cell count decreased [None]
  - Fatigue [None]
  - Therapeutic response decreased [None]
